FAERS Safety Report 4775429-2 (Version None)
Quarter: 2005Q3

REPORT INFORMATION
  Report Type: 
  Country: None (occurrence: None)
  Receive Date: 20050921
  Receipt Date: 20050921
  Transmission Date: 20060218
  Serious: Yes (Hospitalization)
  Sender: FDA-Public Use
  Company Number: None

PATIENT
  Age: 49 Year
  Sex: Female
  Weight: 51.7101 kg

DRUGS (1)
  1. BENADRYL [Suspect]
     Indication: PREMEDICATION
     Dosage: 50 MG ONE TIME IV DRIP
     Route: 042
     Dates: start: 20050916, end: 20050916

REACTIONS (6)
  - CHILLS [None]
  - DRUG TOXICITY [None]
  - DYSKINESIA [None]
  - HEART RATE INCREASED [None]
  - INFUSION RELATED REACTION [None]
  - MUSCLE SPASMS [None]
